FAERS Safety Report 5682399-1 (Version None)
Quarter: 2008Q1

REPORT INFORMATION
  Report Type: 
  Country: None (occurrence: None)
  Receive Date: 20080327
  Receipt Date: 20080318
  Transmission Date: 20080703
  Serious: Yes (Disabling)
  Sender: FDA-Public Use
  Company Number: US-ROCHE-530244

PATIENT
  Age: 91 Year
  Sex: Female

DRUGS (6)
  1. BONIVA [Suspect]
     Indication: OSTEOPOROSIS
     Dosage: DID NOT TAKE DRUG WITH ANY REGULARITY.
     Route: 048
     Dates: start: 20060801
  2. TYLENOL (CAPLET) [Concomitant]
  3. METOPROLOL TARTRATE [Concomitant]
     Indication: HYPERTENSION
  4. CALCIUM [Concomitant]
     Indication: OSTEOPOROSIS
  5. VIT D [Concomitant]
     Indication: OSTEOPOROSIS
  6. ASPIRIN [Concomitant]
     Indication: HYPERTENSION

REACTIONS (2)
  - ANGIOEDEMA [None]
  - RASH [None]
